FAERS Safety Report 21927934 (Version 1)
Quarter: 2023Q1

REPORT INFORMATION
  Report Type: Spontaneous
  Country: US (occurrence: US)
  Receive Date: 20230130
  Receipt Date: 20230130
  Transmission Date: 20230418
  Serious: Yes (Other)
  Sender: FDA-Public Use
  Company Number: US-PFIZER INC-202300039204

PATIENT
  Age: 64 Year
  Sex: Male
  Weight: 70.31 kg

DRUGS (5)
  1. INLYTA [Suspect]
     Active Substance: AXITINIB
     Indication: Renal cancer stage IV
     Dosage: 5 MG, 2X/DAY (5MG 1 TABLET AT NOON, AND 1 TABLET AT MIDNIGHT)
     Dates: start: 20220831
  2. INLYTA [Suspect]
     Active Substance: AXITINIB
     Dosage: UNK
  3. INLYTA [Suspect]
     Active Substance: AXITINIB
     Dosage: 5 MG (1 TABLET ONCE A DAY BY MOUTH)
     Route: 048
  4. KEYTRUDA [Suspect]
     Active Substance: PEMBROLIZUMAB
     Indication: Renal cancer
     Dosage: 400 MG (400MG EVERY 6 WEEKS BY INFUSION)
     Dates: start: 20220926
  5. KEYTRUDA [Suspect]
     Active Substance: PEMBROLIZUMAB
     Indication: Radioimmunotherapy

REACTIONS (1)
  - Blood glucose increased [Not Recovered/Not Resolved]

NARRATIVE: CASE EVENT DATE: 20221219
